FAERS Safety Report 10488371 (Version 2)
Quarter: 2018Q1

REPORT INFORMATION
  Report Type: Report from Study
  Country: US (occurrence: US)
  Receive Date: 20141002
  Receipt Date: 20180116
  Transmission Date: 20180508
  Serious: Yes (Other)
  Sender: FDA-Public Use
  Company Number: PHEH2014US019616

PATIENT
  Sex: Male

DRUGS (2)
  1. HECORIA [Suspect]
     Active Substance: TACROLIMUS
     Indication: PRODUCT USED FOR UNKNOWN INDICATION
     Dosage: TAKES 2 CAPSULES BY MOUTH TWICE DAILY
     Route: 048
  2. MYFORTIC [Suspect]
     Active Substance: MYCOPHENOLATE SODIUM
     Indication: PRODUCT USED FOR UNKNOWN INDICATION
     Dosage: TAKES 2 TABLETS BY MOUTH TWICE DAILY
     Route: 048

REACTIONS (1)
  - Transplant rejection [Unknown]
